FAERS Safety Report 6662216-3 (Version None)
Quarter: 2010Q1

REPORT INFORMATION
  Report Type: 
  Country: None (occurrence: None)
  Receive Date: 20100331
  Receipt Date: 20100319
  Transmission Date: 20100710
  Serious: No
  Sender: FDA-Public Use
  Company Number: US-B.I. PHARMACEUTICALS,INC./RIDGEFIELD-2010-BP-03254BP

PATIENT
  Age: 92 Year
  Sex: Female

DRUGS (4)
  1. SPIRIVA [Suspect]
     Dosage: 18 MCG
     Dates: start: 20070101
  2. FUROSEMIDE [Concomitant]
  3. LISINOPRIL [Concomitant]
  4. TYLENOL-500 [Concomitant]

REACTIONS (1)
  - PNEUMONIA [None]
